FAERS Safety Report 18668520 (Version 1)
Quarter: 2020Q4

REPORT INFORMATION
  Report Type: Spontaneous
  Country: US (occurrence: US)
  Receive Date: 20201228
  Receipt Date: 20201228
  Transmission Date: 20210114
  Serious: No
  Sender: FDA-Public Use
  Company Number: US-DRREDDYS-USA/USA/20/0130147

PATIENT
  Age: 40 Year
  Sex: Female
  Weight: 112.5 kg

DRUGS (1)
  1. OMEPRAZOLE MAGNESIUM DELAYED RELEASE OTC [Suspect]
     Active Substance: OMEPRAZOLE MAGNESIUM
     Indication: DYSPEPSIA
     Dosage: 2 TABLETS WITHIN 24 HOURS
     Route: 048
     Dates: start: 20201215

REACTIONS (1)
  - Wrong technique in product usage process [Not Recovered/Not Resolved]
